FAERS Safety Report 6499018-7 (Version None)
Quarter: 2009Q4

REPORT INFORMATION
  Report Type: 
  Country: None (occurrence: None)
  Receive Date: 20091215
  Receipt Date: 20091207
  Transmission Date: 20100525
  Serious: Yes (Hospitalization)
  Sender: FDA-Public Use
  Company Number: BR-ASTRAZENECA-2009SE30710

PATIENT
  Age: 79 Year
  Sex: Female
  Weight: 58 kg

DRUGS (6)
  1. SEROQUEL [Suspect]
     Indication: DEMENTIA ALZHEIMER'S TYPE
     Route: 048
     Dates: start: 20091101
  2. OMEPRAZOLE [Suspect]
     Route: 048
     Dates: start: 20060101
  3. ERAM [Concomitant]
     Indication: DEMENTIA ALZHEIMER'S TYPE
     Dates: start: 20070101
  4. MODURETIC 5-50 [Concomitant]
  5. SINVASTATIN [Concomitant]
  6. MIRTAZAPINE [Concomitant]
     Indication: DEMENTIA ALZHEIMER'S TYPE

REACTIONS (7)
  - ABDOMINAL PAIN [None]
  - CONSTIPATION [None]
  - DIARRHOEA [None]
  - DIVERTICULITIS [None]
  - GASTROINTESTINAL INFECTION [None]
  - GASTROINTESTINAL NECROSIS [None]
  - INTENTIONAL DRUG MISUSE [None]
